FAERS Safety Report 9399354 (Version 2)
Quarter: 2013Q3

REPORT INFORMATION
  Report Type: Spontaneous
  Country: US (occurrence: US)
  Receive Date: 20130715
  Receipt Date: 20130801
  Transmission Date: 20140515
  Serious: No
  Sender: FDA-Public Use
  Company Number: US-PFIZER INC-2013204918

PATIENT
  Age: 65 Year
  Sex: Female
  Weight: 132 kg

DRUGS (11)
  1. LIPITOR [Suspect]
     Dosage: 20 MG, DAILY
     Route: 048
     Dates: start: 20120814, end: 20130524
  2. ZOLOFT [Suspect]
     Dosage: 100 MG, DAILY
     Route: 048
     Dates: start: 20111017
  3. DIOVAN HCT [Concomitant]
     Indication: HYPERTENSION
     Dosage: 12.5 MG/ 160 MG, 1X/DAY
  4. HUMULIN 70/30 [Concomitant]
     Indication: DIABETES MELLITUS
     Dosage: UNK, 2X/DAY
  5. NOVOLIN 70/30 [Concomitant]
     Indication: DIABETES MELLITUS
     Dosage: DAILY
  6. TRAZODONE [Concomitant]
     Indication: INSOMNIA
     Dosage: 100 MG, 1X/DAY
  7. ASA [Concomitant]
     Dosage: 81 MG, 1X/DAY
  8. VERAMYST [Concomitant]
     Indication: ASTHMA
     Dosage: DAILY
  9. ALBUTEROL [Concomitant]
     Indication: ASTHMA
     Dosage: FOUR TIMES DAILY AS NEEDED
  10. SYMBICORT [Concomitant]
     Dosage: UNK
  11. LEVOTHYROXINE [Concomitant]
     Indication: HYPOTHYROIDISM
     Dosage: 100 UG, 1X/DAY

REACTIONS (1)
  - Blood alkaline phosphatase increased [Recovered/Resolved]
